FAERS Safety Report 6304312-6 (Version None)
Quarter: 2009Q3

REPORT INFORMATION
  Report Type: 
  Country: None (occurrence: None)
  Receive Date: 20090811
  Receipt Date: 20090805
  Transmission Date: 20100115
  Serious: Yes (Other)
  Sender: FDA-Public Use
  Company Number: US-SP-2009-03378

PATIENT
  Age: 70 Year
  Sex: Male

DRUGS (1)
  1. BCG  THERAPEUTICS [Suspect]
     Indication: IMMUNISATION
     Route: 043

REACTIONS (4)
  - CYSTITIS NONINFECTIVE [None]
  - GRANULOMA [None]
  - PROSTATITIS [None]
  - PROSTATOMEGALY [None]
